FAERS Safety Report 13717668 (Version 1)
Quarter: 2017Q3

REPORT INFORMATION
  Report Type: Spontaneous
  Country: US (occurrence: US)
  Receive Date: 20170705
  Receipt Date: 20170705
  Transmission Date: 20171127
  Serious: Yes (Other)
  Sender: FDA-Public Use
  Company Number: US-JUBILANT CADISTA PHARMACEUTICALS-2017JUB00226

PATIENT
  Age: 81 Year
  Sex: Female
  Weight: 75.75 kg

DRUGS (2)
  1. NIFEDICAL XL (TEVA) [Concomitant]
     Dosage: 30 MG, 2X/DAY
     Dates: start: 2001
  2. SPIRONOLACTONE. [Suspect]
     Active Substance: SPIRONOLACTONE
     Dosage: UNK TABLETS, UNK
     Dates: start: 201701

REACTIONS (1)
  - Dyspnoea [Unknown]

NARRATIVE: CASE EVENT DATE: 201701
